FAERS Safety Report 5312424-9 (Version None)
Quarter: 2007Q2

REPORT INFORMATION
  Report Type: 
  Country: None (occurrence: None)
  Receive Date: 20070430
  Receipt Date: 20070426
  Transmission Date: 20071010
  Serious: Yes (Hospitalization)
  Sender: FDA-Public Use
  Company Number: 2005CG00659

PATIENT
  Age: 59 Year
  Sex: Male

DRUGS (2)
  1. NAROPEINE [Suspect]
     Indication: POSTOPERATIVE ANALGESIA
     Route: 050
     Dates: start: 20050309, end: 20050309
  2. OFLOCET [Concomitant]
     Indication: INFECTION PROPHYLAXIS

REACTIONS (1)
  - INJECTION SITE INFECTION [None]
